FAERS Safety Report 16178023 (Version 1)
Quarter: 2019Q2

REPORT INFORMATION
  Report Type: Spontaneous
  Country: FR (occurrence: FR)
  Receive Date: 20190410
  Receipt Date: 20190410
  Transmission Date: 20190711
  Serious: Yes (Hospitalization, Other)
  Sender: FDA-Public Use
  Company Number: FR-AUROBINDO-AUR-APL-2019-018570

PATIENT

DRUGS (2)
  1. PARACETAMOL [Suspect]
     Active Substance: ACETAMINOPHEN
     Indication: PAIN
     Dosage: 1 GRAM, FOUR TIMES/DAY (6 HOUR)
     Route: 048
     Dates: start: 20181020, end: 20181210
  2. FELDENE [Interacting]
     Active Substance: PIROXICAM
     Indication: ARTHRALGIA
     Dosage: 1 DOSAGE FORM, EVERY WEEK, 1 INJECTION EVERY WEEK (12 INJECTIONS IN TOTAL)
     Route: 030
     Dates: start: 20180801, end: 20181001

REACTIONS (1)
  - Hepatitis [Recovered/Resolved]

NARRATIVE: CASE EVENT DATE: 20181115
